FAERS Safety Report 9530162 (Version 1)
Quarter: 2013Q3

REPORT INFORMATION
  Report Type: Spontaneous
  Country: US (occurrence: US)
  Receive Date: 20130917
  Receipt Date: 20130917
  Transmission Date: 20140515
  Serious: Yes (Other)
  Sender: FDA-Public Use
  Company Number: CHPA2013US014074

PATIENT
  Age: 80 Year
  Sex: Female

DRUGS (1)
  1. ACETYLSALICYLIC ACID [Suspect]
     Indication: PAIN
     Dosage: UNK, UNK
     Route: 048

REACTIONS (1)
  - Ulcer [Recovered/Resolved]
